FAERS Safety Report 18813621 (Version 1)
Quarter: 2021Q1

REPORT INFORMATION
  Report Type: Spontaneous
  Country: US (occurrence: US)
  Receive Date: 20210201
  Receipt Date: 20210201
  Transmission Date: 20210419
  Serious: Yes (Hospitalization, Other)
  Sender: FDA-Public Use
  Company Number: US-AUROBINDO-AUR-APL-2013-03170

PATIENT
  Age: 85 Year
  Sex: Female

DRUGS (4)
  1. LANOXIN [Concomitant]
     Active Substance: DIGOXIN
     Indication: PRODUCT USED FOR UNKNOWN INDICATION
     Dosage: 0.125 MILLIGRAM, EVERY 2 DAYS
     Route: 048
  2. COUMADINE [Concomitant]
     Active Substance: WARFARIN SODIUM
     Indication: PRODUCT USED FOR UNKNOWN INDICATION
     Dosage: 2.5 MILLIGRAM, DAILY
     Route: 065
  3. LISINOPRIL TABLETS USP 20 MG [Suspect]
     Active Substance: LISINOPRIL
     Dosage: 20 MILLIGRAM, DAILY
     Route: 065
  4. LISINOPRIL TABLETS USP 20 MG [Suspect]
     Active Substance: LISINOPRIL
     Indication: HYPERTENSION
     Dosage: 10 MILLIGRAM, DAILY
     Route: 065

REACTIONS (7)
  - Cough [Recovered/Resolved]
  - Lip swelling [Recovering/Resolving]
  - Wheezing [Recovered/Resolved]
  - Dyspnoea [Recovered/Resolved]
  - Swelling face [Recovering/Resolving]
  - Angioedema [Recovering/Resolving]
  - Musculoskeletal discomfort [Recovering/Resolving]
